FAERS Safety Report 19722212 (Version 2)
Quarter: 2021Q3

REPORT INFORMATION
  Report Type: Spontaneous
  Country: US (occurrence: US)
  Receive Date: 20210819
  Receipt Date: 20210915
  Transmission Date: 20211014
  Serious: No
  Sender: FDA-Public Use
  Company Number: US-PFIZER INC-202100932915

PATIENT
  Age: 8 Year
  Sex: Male
  Weight: 22.68 kg

DRUGS (1)
  1. GENOTROPIN [Suspect]
     Active Substance: SOMATROPIN
     Indication: GROWTH HORMONE DEFICIENCY
     Dosage: UNK, 1X/DAY (2, HE DIALS THE PEN TO 2, HE IMAGINES UNIT IS MG, BY INJECTION ONCE DAILY)
     Dates: start: 2018

REACTIONS (3)
  - Poor quality device used [Unknown]
  - Device issue [Not Recovered/Not Resolved]
  - Device breakage [Not Recovered/Not Resolved]

NARRATIVE: CASE EVENT DATE: 202010
